FAERS Safety Report 4320344-1 (Version None)
Quarter: 2004Q1

REPORT INFORMATION
  Report Type: 
  Country: None (occurrence: None)
  Receive Date: 20040317
  Receipt Date: 20040308
  Transmission Date: 20041129
  Serious: Yes (Other)
  Sender: FDA-Public Use
  Company Number: 2004202664FR

PATIENT
  Age: 27 Year
  Sex: Female

DRUGS (6)
  1. CLINDAMYCIN HCL [Suspect]
     Indication: ABSCESS BACTERIAL
  2. CEFALEXIN NM (CEFALEXIN) TABLET [Suspect]
     Indication: ABSCESS BACTERIAL
  3. ANUAR (ROXITHROMYCIN) TABLET [Suspect]
     Indication: ABSCESS BACTERIAL
  4. LINEZOLID (LINEZOLID) TABLET [Suspect]
     Indication: ABSCESS BACTERIAL
     Dosage: 600 MG, BID, ORAL
     Route: 048
  5. LEVOFLOXACIN [Suspect]
     Indication: ABSCESS BACTERIAL
  6. PENICILLIN G (GENZYLPENICILLIN) [Concomitant]

REACTIONS (9)
  - ABSCESS [None]
  - ACTINOMYCOSIS [None]
  - DISEASE RECURRENCE [None]
  - DRUG INEFFECTIVE [None]
  - FISTULA [None]
  - NEUROPATHY PERIPHERAL [None]
  - NUCLEAR MAGNETIC RESONANCE IMAGING ABNORMAL [None]
  - OSTEOMYELITIS [None]
  - STREPTOCOCCAL INFECTION [None]
